FAERS Safety Report 6512277-7 (Version None)
Quarter: 2009Q4

REPORT INFORMATION
  Report Type: 
  Country: None (occurrence: None)
  Receive Date: 20091222
  Receipt Date: 20090710
  Transmission Date: 20100525
  Serious: Yes (Other)
  Sender: FDA-Public Use
  Company Number: US-ASTRAZENECA-2009UW19453

PATIENT
  Sex: Female

DRUGS (5)
  1. CRESTOR [Suspect]
     Dosage: 1/2 40 MG TABLET
     Route: 048
     Dates: start: 20070808, end: 20090710
  2. ISOSORBIDE MONONITRATE [Concomitant]
  3. PANTOPRAZOLE [Concomitant]
  4. BENAZEPRIL HYDROCHLORIDE [Concomitant]
  5. BISOPROLOL FUMARATE [Concomitant]

REACTIONS (1)
  - AMNESIA [None]
